FAERS Safety Report 17718969 (Version 8)
Quarter: 2025Q1

REPORT INFORMATION
  Report Type: Spontaneous
  Country: US (occurrence: US)
  Receive Date: 20200428
  Receipt Date: 20250211
  Transmission Date: 20250409
  Serious: Yes (Hospitalization)
  Sender: PFIZER
  Company Number: US-PFIZER INC-2020170105

PATIENT
  Age: 33 Year
  Sex: Female
  Weight: 103.85 kg

DRUGS (13)
  1. SOMAVERT [Suspect]
     Active Substance: PEGVISOMANT
     Indication: Acromegaly
     Dosage: 10 MG, DAILY
     Route: 058
     Dates: start: 20191201
  2. SOMAVERT [Suspect]
     Active Substance: PEGVISOMANT
     Indication: Gigantism
     Route: 058
  3. SOMAVERT [Suspect]
     Active Substance: PEGVISOMANT
     Dosage: 10 MG, DAILY
     Route: 058
     Dates: start: 20191228
  4. CORTEF ACETATE [Concomitant]
     Active Substance: HYDROCORTISONE ACETATE
  5. DESMOPRESSIN ACETATE [Concomitant]
     Active Substance: DESMOPRESSIN ACETATE
  6. EXCEDRIN MIGRAINE [Concomitant]
     Active Substance: ACETAMINOPHEN\ASPIRIN\CAFFEINE
  7. FIORICET [Concomitant]
     Active Substance: ACETAMINOPHEN\BUTALBITAL\CAFFEINE
  8. FLONASE ALLERGY RELIEF [Concomitant]
     Active Substance: FLUTICASONE PROPIONATE
  9. IBUPROFEN [Concomitant]
     Active Substance: IBUPROFEN
  10. LEVOTHYROXINE SODIUM [Concomitant]
     Active Substance: LEVOTHYROXINE SODIUM
  11. ONDANSETRON HYDROCHLORIDE [Concomitant]
     Active Substance: ONDANSETRON HYDROCHLORIDE
  12. TOPAMAX [Concomitant]
     Active Substance: TOPIRAMATE
  13. TYLENOL [Concomitant]
     Active Substance: ACETAMINOPHEN

REACTIONS (12)
  - Adrenal insufficiency [Unknown]
  - Illness [Unknown]
  - Erythema [Unknown]
  - Nausea [Unknown]
  - Vomiting [Unknown]
  - Diarrhoea [Unknown]
  - Asthenia [Unknown]
  - Lethargy [Unknown]
  - Presyncope [Unknown]
  - Hypotension [Unknown]
  - Blood glucose decreased [Unknown]
  - Brain fog [Unknown]

NARRATIVE: CASE EVENT DATE: 20200418
